FAERS Safety Report 6527952-8 (Version None)
Quarter: 2009Q4

REPORT INFORMATION
  Report Type: 
  Country: None (occurrence: None)
  Receive Date: 20091230
  Receipt Date: 20091118
  Transmission Date: 20100525
  Serious: Yes (Other)
  Sender: FDA-Public Use
  Company Number: 2009120052

PATIENT
  Age: 41 Year
  Sex: Male

DRUGS (1)
  1. TORSEMIDE [Suspect]
     Indication: ASCITES
     Dosage: 4 MG (4 MG, 1 IN 1 D), ORAL
     Route: 048
     Dates: start: 20091001, end: 20091112

REACTIONS (1)
  - HYPERKALAEMIA [None]
